FAERS Safety Report 6934213-1 (Version None)
Quarter: 2010Q3

REPORT INFORMATION
  Report Type: 
  Country: None (occurrence: None)
  Receive Date: 20100820
  Receipt Date: 20100813
  Transmission Date: 20110219
  Serious: Yes (Death, Life-Threatening, Hospitalization, Other)
  Sender: FDA-Public Use
  Company Number: US-ELI_LILLY_AND_COMPANY-US201006005543

PATIENT
  Age: 27 Year
  Sex: Male

DRUGS (2)
  1. CIALIS [Suspect]
     Indication: PRODUCT USED FOR UNKNOWN INDICATION
     Dosage: 20 MG, DAILY (1/D)
     Dates: start: 20040101
  2. NEXIUM [Concomitant]
     Dosage: 40 MG, 2/D

REACTIONS (3)
  - CARDIAC ARREST [None]
  - LUNG NEOPLASM MALIGNANT [None]
  - MYOCARDIAL INFARCTION [None]
